FAERS Safety Report 25055799 (Version 2)
Quarter: 2025Q1

REPORT INFORMATION
  Report Type: Spontaneous
  Country: US (occurrence: US)
  Receive Date: 20250309
  Receipt Date: 20250329
  Transmission Date: 20250408
  Serious: No
  Sender: SANOFI AVENTIS
  Company Number: US-SANOFI-02436953

PATIENT
  Age: 10 Year
  Sex: Male

DRUGS (2)
  1. DUPIXENT [Suspect]
     Active Substance: DUPILUMAB
     Indication: Eosinophilic oesophagitis
     Dosage: 300 MG QOW
     Route: 058
     Dates: start: 20250207, end: 20250307
  2. Polyethylene Glycol 3350 GRX [Concomitant]
     Indication: Constipation
     Dosage: 17 Q PO
     Dates: start: 202303

REACTIONS (3)
  - Skin mass [Recovering/Resolving]
  - Skin swelling [Recovering/Resolving]
  - Erythema [Recovering/Resolving]

NARRATIVE: CASE EVENT DATE: 20250224
